FAERS Safety Report 7388349-4 (Version None)
Quarter: 2011Q2

REPORT INFORMATION
  Report Type: 
  Country: None (occurrence: None)
  Receive Date: 20110401
  Receipt Date: 20110318
  Transmission Date: 20111010
  Serious: Yes (Hospitalization)
  Sender: FDA-Public Use
  Company Number: PHHY2011US23369

PATIENT
  Sex: Female

DRUGS (15)
  1. REVLIMID [Suspect]
     Dosage: UNK
     Route: 048
     Dates: start: 20110113
  2. MELPHALAN [Concomitant]
     Indication: MULTIPLE MYELOMA
  3. TOPROL-XL [Concomitant]
     Dosage: 100 MG, QD
  4. BLOOD AND RELATED PRODUCTS [Concomitant]
     Route: 042
  5. MSIR [Concomitant]
     Dosage: 15 MG, Q6H
  6. NEURONTIN [Concomitant]
  7. HYDROCHLOROTHIAZIDE [Concomitant]
  8. ANTIBIOTICS [Concomitant]
     Route: 017
  9. ZOMETA [Suspect]
  10. ASPIRIN [Concomitant]
  11. SIMVASTATIN [Concomitant]
  12. LIPITOR [Concomitant]
     Dosage: 10 MG, QD
  13. REVLIMID [Suspect]
     Indication: MULTIPLE MYELOMA
     Dosage: 10 MG, DAILY FOR 3 WEEKS
     Route: 048
     Dates: start: 20101115, end: 20110101
  14. METFORMIN HCL [Concomitant]
  15. NEXIUM [Concomitant]

REACTIONS (10)
  - PAIN IN EXTREMITY [None]
  - JOINT SWELLING [None]
  - PYREXIA [None]
  - HAEMOGLOBIN DECREASED [None]
  - PLATELET COUNT DECREASED [None]
  - X-RAY LIMB ABNORMAL [None]
  - RED BLOOD CELL SEDIMENTATION RATE INCREASED [None]
  - ARTHRALGIA [None]
  - WHITE BLOOD CELL COUNT DECREASED [None]
  - GOUT [None]
